FAERS Safety Report 5622824-5 (Version None)
Quarter: 2008Q1

REPORT INFORMATION
  Report Type: 
  Country: None (occurrence: None)
  Receive Date: 20080208
  Receipt Date: 20080208
  Transmission Date: 20080703
  Serious: Yes (Death)
  Sender: FDA-Public Use
  Company Number: None

PATIENT
  Sex: Male

DRUGS (1)
  1. ENBREL [Suspect]
     Indication: PSORIASIS
     Dosage: 50 MG BIW SQ
     Route: 058
     Dates: start: 20070101, end: 20080101

REACTIONS (5)
  - BRAIN HERNIATION [None]
  - CEREBRAL HAEMORRHAGE [None]
  - INTRACRANIAL PRESSURE INCREASED [None]
  - PUPIL FIXED [None]
  - RESPIRATORY ARREST [None]
